FAERS Safety Report 5520987-3 (Version None)
Quarter: 2007Q4

REPORT INFORMATION
  Report Type: 
  Country: None (occurrence: None)
  Receive Date: 20071119
  Receipt Date: 20071106
  Transmission Date: 20080405
  Serious: Yes (Other)
  Sender: FDA-Public Use
  Company Number: ES-ROCHE-530456

PATIENT
  Age: 62 Year
  Sex: Female

DRUGS (5)
  1. BONIVA [Suspect]
     Indication: OSTEOPOROSIS
     Dosage: DOSAGE FORM REPORTED AS FILM COATED TABLETS.
     Route: 048
     Dates: start: 20070401, end: 20070901
  2. ACETAMINOPHEN [Concomitant]
     Indication: ARTHRALGIA
     Route: 065
  3. PANTECTA [Concomitant]
     Indication: GASTRITIS
     Dosage: DOSAGE FORM REPORTED AS GASTRO RESISTANT TABLETS.
     Route: 048
     Dates: start: 20050101
  4. CALCIUM CARBONATE/COLECALCIFEROL [Concomitant]
     Indication: OSTEOPOROSIS
     Dosage: STRENGTH AND FORMULATION REPORTED AS 1000MG / 880 IU EFFERVESCENT GRANULES. TRADE NAME REPORTED AS +
     Route: 048
     Dates: start: 20070401
  5. PARAPRES [Concomitant]
     Indication: HYPERTENSION
     Route: 048
     Dates: start: 20020101

REACTIONS (2)
  - OEDEMA PERIPHERAL [None]
  - SCIATICA [None]
